FAERS Safety Report 8199191-9 (Version None)
Quarter: 2012Q1

REPORT INFORMATION
  Report Type: 
  Country: None (occurrence: None)
  Receive Date: 20120309
  Receipt Date: 20120308
  Transmission Date: 20120608
  Serious: Yes (Other)
  Sender: FDA-Public Use
  Company Number: DE-ABBOTT-12P-062-0913235-00

PATIENT
  Age: 30 Year
  Sex: Female
  Weight: 52 kg

DRUGS (1)
  1. HUMIRA [Suspect]
     Indication: CROHN'S DISEASE
     Dosage: FIRST DOSE 160 MG
     Route: 058
     Dates: start: 20110421

REACTIONS (1)
  - ABORTION SPONTANEOUS [None]
